FAERS Safety Report 4386487-1 (Version None)
Quarter: 2004Q2

REPORT INFORMATION
  Report Type: 
  Country: None (occurrence: None)
  Receive Date: 20040623
  Receipt Date: 20040607
  Transmission Date: 20050107
  Serious: Yes (Hospitalization, Other)
  Sender: FDA-Public Use
  Company Number: FROV000207

PATIENT
  Age: 1 Day
  Sex: Female
  Weight: 2.268 kg

DRUGS (3)
  1. FROVA [Suspect]
     Indication: DRUG USE FOR UNKNOWN INDICATION
     Dosage: 5 MG ORAL
     Route: 048
  2. CELEXA [Concomitant]
  3. PRENATAL VITAMINS NOS (PRENATAL VITAMINS NOS) [Concomitant]

REACTIONS (6)
  - CAESAREAN SECTION [None]
  - CLOSTRIDIUM COLITIS [None]
  - DRUG EXPOSURE DURING PREGNANCY [None]
  - JAUNDICE NEONATAL [None]
  - NEONATAL DISORDER [None]
  - RESPIRATORY DISORDER NEONATAL [None]
